FAERS Safety Report 8464667-3 (Version None)
Quarter: 2012Q2

REPORT INFORMATION
  Report Type: 
  Country: None (occurrence: None)
  Receive Date: 20120626
  Receipt Date: 20120615
  Transmission Date: 20120825
  Serious: Yes (Life-Threatening, Hospitalization, Disabling, Other)
  Sender: FDA-Public Use
  Company Number: FR-JNJFOC-20100902274

PATIENT
  Age: 60 Year
  Sex: Female

DRUGS (6)
  1. METHOTREXATE [Suspect]
     Indication: RHEUMATOID ARTHRITIS
     Dates: start: 20070101, end: 20091101
  2. ACETAMINOPHEN AND TRAMADOL HCL [Concomitant]
     Indication: RHEUMATOID ARTHRITIS
     Dosage: DOSE= ^4 DF QD^
     Route: 048
  3. KETOPROFEN [Concomitant]
     Indication: RHEUMATOID ARTHRITIS
     Dosage: DOSE= ^ BIPROFENID 2 DF QD^ AND ^KETOPROFENE 300 MG QD^
     Route: 048
  4. LEXOMIL [Concomitant]
     Dosage: DOSE= ^1/2 DF QD^
     Route: 048
  5. NEXIUM [Concomitant]
     Dosage: DOSE= ^1 DF QD^
     Route: 048
  6. REMICADE [Suspect]
     Indication: RHEUMATOID ARTHRITIS
     Route: 042
     Dates: start: 20030101, end: 20090601

REACTIONS (2)
  - PROGRESSIVE MULTIFOCAL LEUKOENCEPHALOPATHY [None]
  - LYMPHOCYTE COUNT DECREASED [None]
